FAERS Safety Report 17222306 (Version 1)
Quarter: 2020Q1

REPORT INFORMATION
  Report Type: Spontaneous
  Country: US (occurrence: US)
  Receive Date: 20191231
  Receipt Date: 20191231
  Transmission Date: 20200409
  Serious: Yes (Hospitalization)
  Sender: FDA-Public Use
  Company Number: None

PATIENT
  Age: 64 Year
  Sex: Male

DRUGS (2)
  1. ABACAVIR. [Suspect]
     Active Substance: ABACAVIR
     Indication: HIV INFECTION
     Dosage: ?          OTHER FREQUENCY:QPM BED;?
     Route: 048
     Dates: start: 20190131
  2. EFAVIRENZ. [Suspect]
     Active Substance: EFAVIRENZ
     Indication: HIV INFECTION
     Dosage: ?          OTHER FREQUENCY:QPM BED;?
     Route: 048
     Dates: start: 20190131

REACTIONS (2)
  - Gastric perforation [None]
  - Impaired healing [None]

NARRATIVE: CASE EVENT DATE: 20191221
